FAERS Safety Report 4584721-6 (Version None)
Quarter: 2005Q1

REPORT INFORMATION
  Report Type: 
  Country: None (occurrence: None)
  Receive Date: 20050217
  Receipt Date: 20040621
  Transmission Date: 20050727
  Serious: Yes (Other)
  Sender: FDA-Public Use
  Company Number: PHEH2004US06798

PATIENT

DRUGS (1)
  1. FEMARA [Suspect]
     Dosage: 2.5 MG, QD
     Dates: start: 20040401

REACTIONS (1)
  - CARDIAC FAILURE [None]
